FAERS Safety Report 8624721-X (Version None)
Quarter: 2012Q3

REPORT INFORMATION
  Report Type: 
  Country: None (occurrence: None)
  Receive Date: 20120827
  Receipt Date: 20120816
  Transmission Date: 20120928
  Serious: Yes (Other)
  Sender: FDA-Public Use
  Company Number: US-PFIZER INC-2012201161

PATIENT
  Age: 67 Year
  Sex: Female

DRUGS (9)
  1. MULTI-VITAMINS [Concomitant]
     Dosage: UNK
  2. ASCORBIC ACID [Concomitant]
     Dosage: UNK
  3. CELECOXIB [Suspect]
     Dosage: 200 MG, 1X/DAY (ONCE IN THE MORNING)
  4. MAGNESIUM [Concomitant]
     Dosage: UNK
  5. CLARITIN [Concomitant]
     Indication: HYPERSENSITIVITY
     Dosage: UNK
  6. CALCIUM [Concomitant]
     Dosage: UNK
  7. FISH OIL [Concomitant]
     Dosage: UNK
  8. VITAMIN B-12 [Concomitant]
     Dosage: UNK
  9. VITAMIN B6 [Concomitant]
     Dosage: UNK

REACTIONS (3)
  - GINGIVAL BLEEDING [None]
  - ARTHROPATHY [None]
  - ROTATOR CUFF SYNDROME [None]
